FAERS Safety Report 7229949-1 (Version None)
Quarter: 2011Q1

REPORT INFORMATION
  Report Type: 
  Country: None (occurrence: None)
  Receive Date: 20110117
  Receipt Date: 20110111
  Transmission Date: 20110831
  Serious: Yes (Other)
  Sender: FDA-Public Use
  Company Number: FR-ELI_LILLY_AND_COMPANY-FR201010002347

PATIENT
  Age: 74 Year
  Sex: Male
  Weight: 100 kg

DRUGS (17)
  1. NOVONORM [Concomitant]
     Indication: DIABETES MELLITUS
     Dosage: 1 MG, 2/D
     Route: 048
     Dates: start: 20080816
  2. JANUVIA [Concomitant]
     Dosage: 100 MG, DAILY (1/D)
     Dates: start: 20080706
  3. APROVEL [Concomitant]
     Dosage: 150 MG, DAILY (1/D)
     Route: 048
  4. DIFFU K [Concomitant]
     Dosage: 500 MG, 2/D
     Route: 048
  5. METFORMIN HCL [Concomitant]
     Dosage: 500 MG, DAILY (1/D)
     Dates: start: 20080706
  6. TRINIPATCH [Concomitant]
     Dosage: 10 UG, EVERY HOUR
     Route: 062
  7. DIGOXINE [Concomitant]
     Dosage: 0.25 MG, DAILY (1/D)
     Route: 048
  8. BYETTA [Suspect]
     Dosage: 10 UG, 2/D
     Route: 058
     Dates: start: 20090226, end: 20090705
  9. BISOPROLOL [Concomitant]
     Dosage: 5 MG, DAILY (1/D)
     Dates: start: 20090529
  10. PANTOPRAZOLE [Concomitant]
     Dosage: 40 MG, DAILY (1/D)
     Route: 048
  11. FUROSEMIDE [Concomitant]
     Dosage: 40 MG, DAILY (1/D)
  12. CORGARD [Concomitant]
     Dosage: 1 MG, 2/D
     Route: 048
     Dates: end: 20090528
  13. TAHOR [Concomitant]
     Dosage: 10 MG, DAILY (1/D)
  14. BYETTA [Suspect]
     Indication: DIABETES MELLITUS
     Dosage: 5 UG, 2/D
     Route: 058
     Dates: start: 20090129, end: 20090225
  15. ZOLPIDEM [Concomitant]
     Dosage: 10 MG, DAILY (1/D)
     Route: 048
  16. PREVISCAN [Concomitant]
     Route: 048
  17. AMIODARONE HCL [Concomitant]
     Dosage: 2 D/F, DAILY (1/D)

REACTIONS (3)
  - ASTHENIA [None]
  - BLOOD CREATININE INCREASED [None]
  - WEIGHT DECREASED [None]
